FAERS Safety Report 9156239 (Version 4)
Quarter: 2014Q1

REPORT INFORMATION
  Report Type: Spontaneous
  Country: US (occurrence: US)
  Receive Date: 20130311
  Receipt Date: 20140124
  Transmission Date: 20141002
  Serious: No
  Sender: FDA-Public Use
  Company Number: US-009507513-1303USA002127

PATIENT
  Sex: Male

DRUGS (3)
  1. PEGINTRON [Suspect]
     Indication: HEPATITIS C
     Dosage: REDIPEN, UNK(DOSE: MAXIMUM)ONCE A WEEK
     Route: 058
     Dates: start: 20130221, end: 20130905
  2. REBETOL [Suspect]
     Indication: HEPATITIS C
     Dosage: 4 DF, BID(4 PILLS TWICE A DAY)
     Route: 048
     Dates: start: 20130221, end: 20130912
  3. VICTRELIS [Suspect]
     Indication: HEPATITIS C
     Dosage: 4 DF, Q8H (4PILLS , (EVERY EIGHT HOURS))
     Route: 048
     Dates: start: 20130328, end: 20130912

REACTIONS (12)
  - Back pain [Unknown]
  - Gastrointestinal disorder [Unknown]
  - Dry skin [Unknown]
  - Pruritus [Unknown]
  - Anaemia [Unknown]
  - Weight decreased [Unknown]
  - Arthralgia [Unknown]
  - Fatigue [Unknown]
  - Chills [Unknown]
  - Chills [Unknown]
  - Vomiting [Unknown]
  - Dyspnoea [Unknown]
